FAERS Safety Report 10079310 (Version 1)
Quarter: 2014Q2

REPORT INFORMATION
  Report Type: Spontaneous
  Country: US (occurrence: None)
  Receive Date: 20140414
  Receipt Date: 20140414
  Transmission Date: 20141212
  Serious: No
  Sender: FDA-Public Use
  Company Number: None

PATIENT
  Age: 72 Year
  Sex: Female
  Weight: 81.65 kg

DRUGS (5)
  1. SEPTOCAINE [Suspect]
     Indication: TOOTH EXTRACTION
     Route: 048
     Dates: start: 20130502, end: 20140204
  2. BENICAR [Concomitant]
  3. MULTIVITAMIN B6,B12 [Concomitant]
  4. VITAMIN C [Concomitant]
  5. ASPIRIN [Concomitant]

REACTIONS (3)
  - Fatigue [None]
  - Headache [None]
  - Swollen tongue [None]
